FAERS Safety Report 8299526-2 (Version None)
Quarter: 2012Q2

REPORT INFORMATION
  Report Type: 
  Country: None (occurrence: None)
  Receive Date: 20120419
  Receipt Date: 20120403
  Transmission Date: 20120825
  Serious: Yes (Other)
  Sender: FDA-Public Use
  Company Number: CHPA2012US001099

PATIENT
  Age: 52 Year
  Sex: Female

DRUGS (1)
  1. EXCEDRIN (MIGRAINE) [Suspect]
     Indication: HEADACHE
     Dosage: UP TO 4 PILLS, AS NEEDED
     Route: 048
     Dates: start: 20100101, end: 20120111

REACTIONS (10)
  - OVERDOSE [None]
  - HAEMOPTYSIS [None]
  - VOMITING [None]
  - DIZZINESS [None]
  - FRUSTRATION [None]
  - EPISTAXIS [None]
  - FEAR [None]
  - GASTROOESOPHAGEAL REFLUX DISEASE [None]
  - NAUSEA [None]
  - CHEST PAIN [None]
